FAERS Safety Report 9230002 (Version 1)
Quarter: 2013Q1

REPORT INFORMATION
  Report Type: Spontaneous
  Country: US (occurrence: None)
  Receive Date: 20121022
  Receipt Date: 20121022
  Transmission Date: 20140127
  Serious: Yes (Hospitalization)
  Sender: FDA-Public Use
  Company Number: 2011POI057500011

PATIENT
  Sex: Male

DRUGS (1)
  1. DARVOCET-N (PROPACET) (TABLETS) [Suspect]
     Route: 048
     Dates: start: 200911, end: 200912

REACTIONS (1)
  - Tachycardia [None]
